FAERS Safety Report 7363466-3 (Version None)
Quarter: 2011Q1

REPORT INFORMATION
  Report Type: 
  Country: None (occurrence: None)
  Receive Date: 20110321
  Receipt Date: 20110310
  Transmission Date: 20110831
  Serious: No
  Sender: FDA-Public Use
  Company Number: US-JNJFOC-20110305810

PATIENT
  Sex: Female

DRUGS (15)
  1. VITAMIN TAB [Concomitant]
     Route: 048
  2. OXYCODONE AND ACETAMINOPHEN [Concomitant]
     Route: 048
  3. BENADRYL [Concomitant]
     Indication: PRURITUS
     Route: 048
  4. FENTANYL-100 [Suspect]
     Indication: ARTHRITIS
     Route: 062
  5. ZANTAC [Concomitant]
     Route: 048
  6. ASPIRIN [Concomitant]
     Route: 048
  7. CELEBREX [Concomitant]
     Indication: ARTHRITIS
     Route: 048
  8. METFORMIN [Concomitant]
     Indication: DIABETES MELLITUS
     Route: 048
  9. METOPROLOL [Concomitant]
     Indication: HYPERTENSION
     Route: 048
  10. IRON [Concomitant]
     Indication: ANAEMIA
     Route: 048
  11. UNKNOWN MEDICATION [Concomitant]
  12. FENTANYL-100 [Suspect]
     Indication: BACK PAIN
     Route: 062
  13. LISINOPRIL [Concomitant]
     Indication: HYPERTENSION
     Route: 048
  14. CALCIUM [Concomitant]
     Indication: BONE DISORDER
     Route: 048
  15. SIMVASTATIN [Concomitant]
     Indication: BLOOD CHOLESTEROL INCREASED
     Route: 048

REACTIONS (3)
  - DRUG ADMINISTERED AT INAPPROPRIATE SITE [None]
  - PAIN IN EXTREMITY [None]
  - PRODUCT ADHESION ISSUE [None]
